FAERS Safety Report 15048242 (Version 1)
Quarter: 2018Q2

REPORT INFORMATION
  Report Type: Report from Study
  Country: JP (occurrence: JP)
  Receive Date: 20180622
  Receipt Date: 20180622
  Transmission Date: 20180711
  Serious: Yes (Death, Other)
  Sender: FDA-Public Use
  Company Number: JP-AMGEN-JPNCT2018057441

PATIENT
  Age: 87 Year
  Sex: Female

DRUGS (13)
  1. SOLDEM 1 [Concomitant]
     Active Substance: DEXTROSE\SODIUM CHLORIDE\SODIUM LACTATE
     Indication: HYPERPARATHYROIDISM PRIMARY
     Dosage: 500 ML, UNK
     Route: 041
     Dates: start: 20180224, end: 20180226
  2. ELCITONIN [Concomitant]
     Active Substance: ELCATONIN
     Indication: HYPERPARATHYROIDISM PRIMARY
     Dosage: 80 IU, UNK
     Route: 030
     Dates: end: 20180225
  3. CINACALCET HCL [Suspect]
     Active Substance: CINACALCET HYDROCHLORIDE
     Dosage: 25 MG, UNK
     Route: 048
     Dates: start: 20180226, end: 20180407
  4. K-SUPPLY [Concomitant]
     Active Substance: POTASSIUM CHLORIDE
     Indication: HYPOKALAEMIA
     Dosage: 1200 MG, UNK
     Route: 048
     Dates: end: 20180407
  5. MIYA-BM [Concomitant]
     Active Substance: CLOSTRIDIUM BUTYRICUM SPORES STRAIN M-55
     Indication: CONSTIPATION
     Dosage: 3 DF, UNK
     Route: 048
     Dates: end: 20180407
  6. CINACALCET HCL [Suspect]
     Active Substance: CINACALCET HYDROCHLORIDE
     Indication: HYPERPARATHYROIDISM PRIMARY
     Dosage: 25 MG, UNK
     Route: 048
     Dates: start: 20180223, end: 20180225
  7. BIOFERMIN T [Concomitant]
     Indication: CONSTIPATION
     Dosage: 3 DF, UNK
     Route: 048
     Dates: end: 20180407
  8. FUROSEMIDE. [Concomitant]
     Active Substance: FUROSEMIDE
     Indication: HYPERPARATHYROIDISM PRIMARY
     Dosage: 20 MG, UNK
     Route: 065
     Dates: end: 20180226
  9. MAGNESIUM OXIDE. [Concomitant]
     Active Substance: MAGNESIUM OXIDE
     Indication: CONSTIPATION
     Dosage: 500 MG, UNK
     Route: 048
     Dates: end: 20180407
  10. NEXIUM [Concomitant]
     Active Substance: ESOMEPRAZOLE MAGNESIUM
     Indication: GASTROOESOPHAGEAL REFLUX DISEASE
     Dosage: 20 MG, UNK
     Route: 048
     Dates: end: 20180407
  11. ISOTONIC SODIUM CHLORIDE SOLUTION [Concomitant]
     Active Substance: SODIUM CHLORIDE
     Indication: HYPERPARATHYROIDISM PRIMARY
     Dosage: 500 ML, UNK
     Route: 042
     Dates: end: 20180223
  12. K.C.L. [Concomitant]
     Indication: HYPOKALAEMIA
     Dosage: 20 MEQ, UNK
     Route: 042
     Dates: end: 20180226
  13. ELCITONIN [Concomitant]
     Active Substance: ELCATONIN
     Dosage: 40 IU, UNK
     Route: 030
     Dates: start: 20180226, end: 20180226

REACTIONS (2)
  - Cardiac failure acute [Fatal]
  - Marasmus [Fatal]

NARRATIVE: CASE EVENT DATE: 20180407
